FAERS Safety Report 8811147 (Version 1)
Quarter: 2012Q4

REPORT INFORMATION
  Report Type: Spontaneous
  Country: US (occurrence: None)
  Receive Date: 20120925
  Receipt Date: 20120925
  Transmission Date: 20130627
  Serious: Yes (Other)
  Sender: FDA-Public Use
  Company Number: None

PATIENT
  Age: 60 Year
  Sex: Male
  Weight: 121.11 kg

DRUGS (1)
  1. PLAVIX [Suspect]
     Indication: STENT PLACEMENT
     Dates: start: 2000, end: 2011

REACTIONS (7)
  - Pain in extremity [None]
  - Hypoaesthesia [None]
  - Abasia [None]
  - Dyspnoea [None]
  - Insomnia [None]
  - Fatigue [None]
  - Anxiety [None]
